FAERS Safety Report 20665768 (Version 2)
Quarter: 2022Q2

REPORT INFORMATION
  Report Type: Spontaneous
  Country: US (occurrence: US)
  Receive Date: 20220402
  Receipt Date: 20220422
  Transmission Date: 20220721
  Serious: Yes (Hospitalization, Other)
  Sender: FDA-Public Use
  Company Number: US-BRISTOL-MYERS SQUIBB COMPANY-2022-012365

PATIENT
  Age: 91 Year
  Sex: Female

DRUGS (2)
  1. REVLIMID [Suspect]
     Active Substance: LENALIDOMIDE
     Indication: Diffuse large B-cell lymphoma
     Route: 048
     Dates: start: 20161016
  2. REVLIMID [Suspect]
     Active Substance: LENALIDOMIDE
     Route: 048
     Dates: start: 20161012

REACTIONS (5)
  - Confusional state [Unknown]
  - Urinary tract infection [Unknown]
  - Sepsis [Unknown]
  - Chest pain [Unknown]
  - Costochondritis [Unknown]

NARRATIVE: CASE EVENT DATE: 20220228
